FAERS Safety Report 10722745 (Version 4)
Quarter: 2015Q1

REPORT INFORMATION
  Report Type: Report from Study
  Country: CA (occurrence: CA)
  Receive Date: 20150120
  Receipt Date: 20150327
  Transmission Date: 20150721
  Serious: Yes (Other)
  Sender: FDA-Public Use
  Company Number: CA-ROCHE-1428804

PATIENT
  Age: 68 Year
  Sex: Female

DRUGS (10)
  1. METHYLPREDNISOLONE. [Concomitant]
     Active Substance: METHYLPREDNISOLONE
     Indication: PREMEDICATION
     Route: 042
     Dates: start: 20140616
  2. RITUXAN [Suspect]
     Active Substance: RITUXIMAB
     Indication: RHEUMATOID ARTHRITIS
     Route: 042
     Dates: start: 20140616
  3. PREDNISONE. [Concomitant]
     Active Substance: PREDNISONE
  4. DOMPERIDONE [Concomitant]
     Active Substance: DOMPERIDONE
  5. RITUXAN [Suspect]
     Active Substance: RITUXIMAB
     Indication: VASCULITIS
     Route: 042
     Dates: start: 20150309
  6. DIPHENHYDRAMINE [Concomitant]
     Active Substance: DIPHENHYDRAMINE
     Indication: PREMEDICATION
     Route: 048
     Dates: start: 20140616
  7. ACETAMINOPHEN. [Concomitant]
     Active Substance: ACETAMINOPHEN
     Indication: PREMEDICATION
     Route: 048
     Dates: start: 20140616
  8. HYDROXYCHLOROQUINE [Concomitant]
     Active Substance: HYDROXYCHLOROQUINE
  9. TRENTAL [Concomitant]
     Active Substance: PENTOXIFYLLINE
  10. SYNTHROID [Concomitant]
     Active Substance: LEVOTHYROXINE SODIUM

REACTIONS (22)
  - Vertigo [Unknown]
  - Infusion related reaction [Recovered/Resolved]
  - Sinusitis [Recovering/Resolving]
  - Fatigue [Recovered/Resolved]
  - Cough [Unknown]
  - Off label use [Unknown]
  - Feeling hot [Unknown]
  - Impaired self-care [Not Recovered/Not Resolved]
  - Arthralgia [Recovered/Resolved]
  - Dysphagia [Unknown]
  - Mobility decreased [Not Recovered/Not Resolved]
  - Dysphagia [Recovered/Resolved]
  - Ill-defined disorder [Unknown]
  - Myalgia [Recovered/Resolved]
  - Pain [Not Recovered/Not Resolved]
  - Chest discomfort [Recovered/Resolved]
  - Gastroenteritis viral [Not Recovered/Not Resolved]
  - Asthenia [Not Recovered/Not Resolved]
  - Visual acuity reduced [Unknown]
  - Chills [Recovered/Resolved]
  - Arthralgia [Unknown]
  - Peripheral swelling [Unknown]

NARRATIVE: CASE EVENT DATE: 20140630
